FAERS Safety Report 12860429 (Version 1)
Quarter: 2016Q4

REPORT INFORMATION
  Report Type: Spontaneous
  Country: BR (occurrence: BR)
  Receive Date: 20161019
  Receipt Date: 20161019
  Transmission Date: 20170207
  Serious: Yes (Other)
  Sender: FDA-Public Use
  Company Number: BR-ALEXION PHARMACEUTICALS INC-A201607843

PATIENT
  Sex: Male

DRUGS (2)
  1. SOLIRIS [Suspect]
     Active Substance: ECULIZUMAB
     Dosage: UNK, Q2W
     Route: 042
  2. SOLIRIS [Suspect]
     Active Substance: ECULIZUMAB
     Indication: HAEMOLYTIC URAEMIC SYNDROME
     Dosage: UNK, Q3W
     Route: 042
     Dates: start: 201410

REACTIONS (6)
  - Device related infection [Unknown]
  - Device malfunction [Unknown]
  - Device extrusion [Unknown]
  - Inappropriate schedule of drug administration [Unknown]
  - Hyperferritinaemia [Unknown]
  - Product contamination microbial [Unknown]
